FAERS Safety Report 23990810 (Version 3)
Quarter: 2024Q3

REPORT INFORMATION
  Report Type: Spontaneous
  Country: RS (occurrence: None)
  Receive Date: 20240619
  Receipt Date: 20240726
  Transmission Date: 20241016
  Serious: Yes (Other)
  Sender: ASTRAZENECA
  Company Number: 2024A139295

PATIENT
  Age: 65 Year
  Sex: Female

DRUGS (30)
  1. IMFINZI [Suspect]
     Active Substance: DURVALUMAB
     Indication: Neoplasm malignant
     Dosage: UNKNOWN
     Route: 042
  2. CISPLATIN [Concomitant]
     Active Substance: CISPLATIN
  3. VEPESID [Concomitant]
     Active Substance: ETOPOSIDE
  4. RAMIPRIL [Concomitant]
     Active Substance: RAMIPRIL
  5. RAMIPRIL [Concomitant]
     Active Substance: RAMIPRIL
  6. CAPTOPRIL [Concomitant]
     Active Substance: CAPTOPRIL
  7. CAPTOPRIL [Concomitant]
     Active Substance: CAPTOPRIL
  8. PRONISON [Concomitant]
     Active Substance: PREDNISONE
  9. PRONISON [Concomitant]
     Active Substance: PREDNISONE
  10. ONDANSETRON HYDROCHLORIDE [Concomitant]
     Active Substance: ONDANSETRON HYDROCHLORIDE
  11. ONDANSETRON HYDROCHLORIDE [Concomitant]
     Active Substance: ONDANSETRON HYDROCHLORIDE
  12. BISOPROLOL FUMARATE [Concomitant]
     Active Substance: BISOPROLOL FUMARATE
  13. GLUCOPHAGE [Concomitant]
     Active Substance: METFORMIN HYDROCHLORIDE
  14. GLUCOPHAGE [Concomitant]
     Active Substance: METFORMIN HYDROCHLORIDE
  15. ACETAMINOPHEN [Concomitant]
     Active Substance: ACETAMINOPHEN
  16. OLODATEROL HYDROCHLORIDE\TIOTROPIUM BROMIDE MONOHYDRATE [Concomitant]
     Active Substance: OLODATEROL HYDROCHLORIDE\TIOTROPIUM BROMIDE MONOHYDRATE
  17. FENOTEROL HYDROBROMIDE\IPRATROPIUM BROMIDE [Concomitant]
     Active Substance: FENOTEROL HYDROBROMIDE\IPRATROPIUM BROMIDE
  18. EFTIL R [Concomitant]
  19. HALDOL [Concomitant]
     Active Substance: HALOPERIDOL
  20. FENTANYL [Concomitant]
     Active Substance: FENTANYL\FENTANYL CITRATE
  21. SPIRONOLACTONE [Concomitant]
     Active Substance: SPIRONOLACTONE
  22. SPIRONOLACTONE [Concomitant]
     Active Substance: SPIRONOLACTONE
  23. XARELTO [Concomitant]
     Active Substance: RIVAROXABAN
  24. XARELTO [Concomitant]
     Active Substance: RIVAROXABAN
  25. LASIX [Concomitant]
     Active Substance: FUROSEMIDE
  26. CONTROLOC [Concomitant]
     Active Substance: PANTOPRAZOLE SODIUM
  27. CONTROLOC [Concomitant]
     Active Substance: PANTOPRAZOLE SODIUM
  28. MEGACE [Concomitant]
     Active Substance: MEGESTROL ACETATE
  29. DEXAMETHASONE [Concomitant]
     Active Substance: DEXAMETHASONE
  30. BROMAZEPAM [Concomitant]
     Active Substance: BROMAZEPAM

REACTIONS (7)
  - Neutropenia [Recovered/Resolved]
  - Atrial fibrillation [Unknown]
  - Urinary retention [Recovered/Resolved]
  - Hallucination [Unknown]
  - Hypoalbuminaemia [Recovered/Resolved]
  - Anxiety [Unknown]
  - Hyperthyroidism [Recovered/Resolved]
